FAERS Safety Report 14938085 (Version 3)
Quarter: 2019Q4

REPORT INFORMATION
  Report Type: Spontaneous
  Country: GB (occurrence: GB)
  Receive Date: 20180525
  Receipt Date: 20191120
  Transmission Date: 20200122
  Serious: Yes (Death, Hospitalization, Other)
  Sender: FDA-Public Use
  Company Number: GB-TEVA-2018-GB-897501

PATIENT
  Age: 82 Year
  Sex: Male

DRUGS (11)
  1. OMEPRAZOLE. [Concomitant]
     Active Substance: OMEPRAZOLE
     Indication: GASTRIC ULCER
     Dosage: 20 MILLIGRAM DAILY;
     Route: 048
     Dates: start: 200010
  2. SIMVASTATIN. [Concomitant]
     Active Substance: SIMVASTATIN
     Indication: HYPERCHOLESTEROLAEMIA
     Dosage: 20 MILLIGRAM DAILY; AT NIGHT
     Route: 048
     Dates: start: 201305
  3. FUROSEMIDE. [Concomitant]
     Active Substance: FUROSEMIDE
     Indication: CARDIAC FAILURE CONGESTIVE
     Dosage: 120 MILLIGRAM DAILY;
     Route: 048
     Dates: start: 20180103
  4. WARFARIN [Suspect]
     Active Substance: WARFARIN
     Indication: AORTIC VALVE REPLACEMENT
     Dosage: VARIABLE (AS PER INR) - 2 OR 3MG ON ALTERNATE DAYS.
     Route: 048
     Dates: start: 19980420, end: 20180210
  5. PARACETAMOL [Concomitant]
     Active Substance: ACETAMINOPHEN
     Dosage: 2 GRAM DAILY;
  6. DIHYDROCODEINE [Concomitant]
     Active Substance: DIHYDROCODEINE
     Indication: OSTEOARTHRITIS
     Dosage: 60 MILLIGRAM DAILY; PRESUMABLY FOR OSTEOARTHRITIS.
     Dates: start: 20010529
  7. SOLIFENACIN [Concomitant]
     Active Substance: SOLIFENACIN
     Indication: LOWER URINARY TRACT SYMPTOMS
     Dosage: 10 MILLIGRAM DAILY; AT NIGHT
     Dates: start: 201305
  8. CASSIA [Concomitant]
     Indication: CONSTIPATION
     Dosage: 15 MILLIGRAM DAILY; AT NIGHT
     Route: 048
     Dates: start: 20010506
  9. FUROSEMIDE. [Concomitant]
     Active Substance: FUROSEMIDE
     Route: 048
     Dates: start: 20160314, end: 20180102
  10. FERROUS FUMARATE [Concomitant]
     Active Substance: FERROUS FUMARATE
     Indication: IRON DEFICIENCY ANAEMIA
     Dosage: 420 MILLIGRAM DAILY;
     Route: 048
     Dates: start: 201712
  11. MOVICOL [Concomitant]
     Active Substance: POLYETHYLENE GLYCOL 3350\POTASSIUM CHLORIDE\SODIUM BICARBONATE\SODIUM CHLORIDE
     Indication: CONSTIPATION
     Dosage: 13.8 GRAM DAILY;
     Route: 048
     Dates: start: 201402

REACTIONS (6)
  - Malaise [Fatal]
  - Subdural haemorrhage [Fatal]
  - Confusional state [Fatal]
  - Depressed level of consciousness [Fatal]
  - Pneumonia [Fatal]
  - Cough [Fatal]

NARRATIVE: CASE EVENT DATE: 20180208
